FAERS Safety Report 23432815 (Version 1)
Quarter: 2024Q1

REPORT INFORMATION
  Report Type: Spontaneous
  Country: US (occurrence: None)
  Receive Date: 20240123
  Receipt Date: 20240123
  Transmission Date: 20240409
  Serious: No
  Sender: FDA-Public Use
  Company Number: None

PATIENT
  Age: 9 Year
  Sex: Male

DRUGS (1)
  1. FAMILY CARE NASAL RELIEF [Suspect]
     Active Substance: OXYMETAZOLINE HYDROCHLORIDE
     Indication: Sinus congestion
     Dates: start: 20240122, end: 20240122

REACTIONS (5)
  - Urticaria [None]
  - Skin burning sensation [None]
  - Facial pain [None]
  - Pruritus [None]
  - Drug hypersensitivity [None]

NARRATIVE: CASE EVENT DATE: 20240122
